FAERS Safety Report 23999478 (Version 2)
Quarter: 2024Q3

REPORT INFORMATION
  Report Type: Spontaneous
  Country: US (occurrence: US)
  Receive Date: 20240621
  Receipt Date: 20240716
  Transmission Date: 20241017
  Serious: No
  Sender: SANOFI AVENTIS
  Company Number: US-SANOFI-01337709

PATIENT
  Age: 60 Year
  Sex: Male
  Weight: 95.238 kg

DRUGS (3)
  1. ADMELOG [Suspect]
     Active Substance: INSULIN LISPRO
     Indication: Type 2 diabetes mellitus
     Dosage: HE INJECTS FROM 8 TO 14 UNITS QD
     Dates: start: 2022
  2. ADMELOG [Suspect]
     Active Substance: INSULIN LISPRO
     Dosage: 12 IU
  3. ADMELOG [Suspect]
     Active Substance: INSULIN LISPRO
     Dosage: 8 IU, TID

REACTIONS (1)
  - Product storage error [Unknown]
